FAERS Safety Report 7782516-3 (Version None)
Quarter: 2011Q3

REPORT INFORMATION
  Report Type: 
  Country: None (occurrence: None)
  Receive Date: 20110928
  Receipt Date: 20110915
  Transmission Date: 20111222
  Serious: Yes (Hospitalization, Other)
  Sender: FDA-Public Use
  Company Number: SE-ELI_LILLY_AND_COMPANY-SE201106006304

PATIENT
  Sex: Female

DRUGS (3)
  1. ATENOLOL [Concomitant]
     Indication: BLOOD PRESSURE
     Dosage: 100 MG, QD
     Dates: start: 20110110
  2. LEVOTHYROXINE SODIUM [Concomitant]
     Dosage: UNK, QD
     Route: 048
     Dates: start: 20070110
  3. OLANZAPINE [Suspect]
     Indication: PSYCHOTIC DISORDER
     Dosage: 300 MG, UNK
     Route: 030
     Dates: start: 20110322, end: 20110322

REACTIONS (6)
  - SOMNOLENCE [None]
  - DYSARTHRIA [None]
  - HEART RATE INCREASED [None]
  - FATIGUE [None]
  - BLOOD PRESSURE INCREASED [None]
  - BIPOLAR DISORDER [None]
